FAERS Safety Report 12999702 (Version 4)
Quarter: 2017Q2

REPORT INFORMATION
  Report Type: Report from Study
  Country: GB (occurrence: GB)
  Receive Date: 20161205
  Receipt Date: 20170518
  Transmission Date: 20170830
  Serious: Yes (Hospitalization)
  Sender: FDA-Public Use
  Company Number: GB-ROCHE-1857736

PATIENT
  Age: 61 Year
  Sex: Male
  Weight: 74.9 kg

DRUGS (11)
  1. ATEZOLIZUMAB [Suspect]
     Active Substance: ATEZOLIZUMAB
     Indication: RENAL CELL CARCINOMA
     Dosage: THE MOST RECENT DOSE OF ATEZOLIZUMAB PRIOR TO THE ONSET OF THE EVENT WAS 1200 MG ON 14/NOV/2016.?ON
     Route: 042
     Dates: start: 20160215
  2. ACICLOVIR [Concomitant]
     Active Substance: ACYCLOVIR
     Indication: HERPES ZOSTER
     Route: 048
     Dates: start: 20161205, end: 20161212
  3. THYROXIN [Concomitant]
     Active Substance: LEVOTHYROXINE
     Route: 048
     Dates: start: 20160422
  4. CORSODYL [Concomitant]
     Active Substance: CHLORHEXIDINE GLUCONATE
     Indication: MUCOSAL INFLAMMATION
     Route: 061
     Dates: start: 20161111, end: 20161202
  5. BEVACIZUMAB [Suspect]
     Active Substance: BEVACIZUMAB
     Indication: RENAL CELL CARCINOMA
     Dosage: THE MOST RECENT DOSE OF BEVACIZUMAB PRIOR TO THE ONSET OF THE EVENT WAS 1200 MG ON 17/OCT/2016.?ON 1
     Route: 042
     Dates: start: 20160215
  6. ASPIRIN. [Concomitant]
     Active Substance: ASPIRIN
     Indication: LOSS OF CONSCIOUSNESS
     Route: 048
  7. CODEIN [Concomitant]
     Active Substance: CODEINE
     Indication: PELVIC PAIN
     Route: 048
     Dates: start: 20170424, end: 20170426
  8. DOMPERIDONE [Concomitant]
     Active Substance: DOMPERIDONE
     Indication: NAUSEA
     Route: 048
     Dates: start: 20160307, end: 20161123
  9. LEVETIRACETAM. [Concomitant]
     Active Substance: LEVETIRACETAM
     Indication: LOSS OF CONSCIOUSNESS
     Route: 048
  10. THYROXIN [Concomitant]
     Active Substance: LEVOTHYROXINE
     Indication: HYPOTHYROIDISM
     Route: 065
     Dates: start: 20160401
  11. PARACETAMOL [Concomitant]
     Active Substance: ACETAMINOPHEN
     Indication: PELVIC PAIN
     Route: 048
     Dates: start: 20160422

REACTIONS (1)
  - Haematoma infection [Recovered/Resolved with Sequelae]

NARRATIVE: CASE EVENT DATE: 20161029
